FAERS Safety Report 4930316-1 (Version None)
Quarter: 2006Q1

REPORT INFORMATION
  Report Type: 
  Country: None (occurrence: None)
  Receive Date: 20060227
  Receipt Date: 20060220
  Transmission Date: 20060701
  Serious: Yes (Hospitalization)
  Sender: FDA-Public Use
  Company Number: 2006BI002850

PATIENT
  Age: 47 Year
  Sex: Female
  Weight: 83.0083 kg

DRUGS (3)
  1. AVONEX [Suspect]
     Indication: MULTIPLE SCLEROSIS
     Dosage: 30 UG QW IM
     Route: 030
     Dates: end: 20040101
  2. AVONEX [Suspect]
     Indication: MULTIPLE SCLEROSIS
     Dosage: 30 UG QW IM
     Route: 030
     Dates: start: 20040101
  3. PIROXICAM [Concomitant]

REACTIONS (11)
  - CHILLS [None]
  - CONDITION AGGRAVATED [None]
  - HEADACHE [None]
  - INFLUENZA LIKE ILLNESS [None]
  - INJECTION SITE HAEMORRHAGE [None]
  - MEMORY IMPAIRMENT [None]
  - MENOPAUSE [None]
  - PAIN [None]
  - PARAESTHESIA [None]
  - POLYP [None]
  - SLEEP DISORDER [None]
